FAERS Safety Report 8767603 (Version 1)
Quarter: 2012Q4

REPORT INFORMATION
  Report Type: 
  Country: US (occurrence: US)
  Receive Date: 20120904
  Receipt Date: 20120904
  Transmission Date: 20130627
  Serious: No
  Sender: FDA-Public Use
  Company Number: US-PFIZER INC-2012213658

PATIENT

DRUGS (3)
  1. CHILDRENS ADVIL [Suspect]
     Indication: NASOPHARYNGITIS
     Dosage: UNK
     Dates: start: 201208
  2. CHILDRENS ADVIL [Suspect]
     Indication: PYREXIA
  3. CHILDRENS ADVIL [Suspect]
     Indication: HEADACHE

REACTIONS (4)
  - Malaise [Unknown]
  - Drug ineffective [Unknown]
  - Condition aggravated [Unknown]
  - Product physical issue [Unknown]
